FAERS Safety Report 13502009 (Version 1)
Quarter: 2017Q2

REPORT INFORMATION
  Report Type: Spontaneous
  Country: DE (occurrence: DE)
  Receive Date: 20170502
  Receipt Date: 20170502
  Transmission Date: 20170830
  Serious: Yes (Hospitalization)
  Sender: FDA-Public Use
  Company Number: DE-009507513-1704DEU015332

PATIENT
  Age: 57 Year
  Sex: Female

DRUGS (8)
  1. ZYPREXA [Interacting]
     Active Substance: OLANZAPINE
     Dosage: 5 MG (MILLIGRAM(S)), 1 DAY
     Route: 048
     Dates: start: 20160718, end: 20160809
  2. MELPERONE [Interacting]
     Active Substance: MELPERONE
     Dosage: 100 MG (MILLIGRAM(S)), 1 DAY
     Route: 048
     Dates: start: 20160727, end: 20160808
  3. ZYPREXA [Interacting]
     Active Substance: OLANZAPINE
     Dosage: 2.5 MG (MILLIGRAM(S)), 1 DAY
     Route: 048
     Dates: start: 20160715, end: 20160717
  4. ZYPREXA [Interacting]
     Active Substance: OLANZAPINE
     Dosage: 2.5 MG (MILLIGRAM(S)), 1 DAY
     Route: 048
     Dates: start: 20160810, end: 20160816
  5. MELPERONE [Interacting]
     Active Substance: MELPERONE
     Dosage: 50 MG (MILLIGRAM(S)), 1 DAY
     Route: 048
     Dates: start: 20160707, end: 20160726
  6. SEROQUEL [Interacting]
     Active Substance: QUETIAPINE FUMARATE
     Dosage: 150 MG (MILLIGRAM(S)), 1 DAY
     Route: 048
     Dates: start: 20160616, end: 20160708
  7. REMERGIL [Suspect]
     Active Substance: MIRTAZAPINE
     Dosage: 45 MG (MILLIGRAM(S)), 1 DAY
     Route: 048
     Dates: start: 20160617
  8. SEROQUEL [Interacting]
     Active Substance: QUETIAPINE FUMARATE
     Dosage: 300 MG (MILLIGRAM(S)), 1 DAY
     Route: 048
     Dates: start: 20160902

REACTIONS (3)
  - Urinary hesitation [Recovered/Resolved]
  - Drug interaction [Recovered/Resolved]
  - Urinary retention [Recovered/Resolved]

NARRATIVE: CASE EVENT DATE: 2016
